FAERS Safety Report 10933485 (Version 8)
Quarter: 2015Q4

REPORT INFORMATION
  Report Type: Spontaneous
  Country: JP (occurrence: JP)
  Receive Date: 20150320
  Receipt Date: 20151016
  Transmission Date: 20160304
  Serious: Yes (Hospitalization, Disabling, Other)
  Sender: FDA-Public Use
  Company Number: JP-ASTRAZENECA-2015SE25082

PATIENT
  Age: 65 Year
  Sex: Male
  Weight: 44 kg

DRUGS (27)
  1. TRAZENTA [Concomitant]
     Active Substance: LINAGLIPTIN
     Indication: TYPE 2 DIABETES MELLITUS
     Route: 048
     Dates: start: 20131129
  2. OZAGREL SODIUM [Concomitant]
     Active Substance: OZAGREL
  3. GASLON [Concomitant]
     Active Substance: IRSOGLADINE MALEATE
     Indication: CHRONIC GASTRITIS
     Route: 048
     Dates: start: 20150108
  4. EUGLUCON [Concomitant]
     Active Substance: GLYBURIDE
     Indication: TYPE 2 DIABETES MELLITUS
     Dosage: 5 MG IN THE MORNING AND 2.5 MG IN THE EVENING
     Route: 048
     Dates: start: 20120105
  5. EUGLUCON [Concomitant]
     Active Substance: GLYBURIDE
     Indication: TYPE 2 DIABETES MELLITUS
     Route: 048
     Dates: start: 20120106
  6. METGLUCO [Concomitant]
     Active Substance: METFORMIN HYDROCHLORIDE
     Indication: TYPE 2 DIABETES MELLITUS
     Route: 048
     Dates: start: 20150316
  7. CRESTOR [Concomitant]
     Active Substance: ROSUVASTATIN CALCIUM
     Indication: DYSLIPIDAEMIA
     Route: 048
     Dates: start: 20150304
  8. VOLTAREN [Concomitant]
     Active Substance: DICLOFENAC SODIUM
     Indication: LUMBAR SPINAL STENOSIS
     Route: 054
  9. PATELL [Concomitant]
     Indication: LUMBAR SPINAL STENOSIS
     Dosage: DOSE UNKNOWN
     Route: 062
  10. PARIET [Concomitant]
     Active Substance: RABEPRAZOLE SODIUM
     Indication: GASTROOESOPHAGEAL REFLUX DISEASE
     Route: 048
     Dates: start: 20150108
  11. TRAZENTA [Concomitant]
     Active Substance: LINAGLIPTIN
     Indication: TYPE 2 DIABETES MELLITUS
     Route: 048
     Dates: start: 20130904
  12. METGLUCO [Concomitant]
     Active Substance: METFORMIN HYDROCHLORIDE
     Indication: TYPE 2 DIABETES MELLITUS
     Route: 048
     Dates: start: 20130904, end: 20150315
  13. AMARYL [Concomitant]
     Active Substance: GLIMEPIRIDE
     Indication: TYPE 2 DIABETES MELLITUS
     Route: 048
     Dates: start: 20131129
  14. FORXIGA [Suspect]
     Active Substance: DAPAGLIFLOZIN
     Indication: TYPE 2 DIABETES MELLITUS
     Route: 048
     Dates: start: 20141210, end: 20150310
  15. MUCOSTA [Concomitant]
     Active Substance: REBAMIPIDE
     Indication: POSTOPERATIVE CARE
     Route: 048
  16. PARIET [Concomitant]
     Active Substance: RABEPRAZOLE SODIUM
     Indication: POSTOPERATIVE CARE
     Route: 048
     Dates: start: 20150108
  17. JANUVIA [Concomitant]
     Active Substance: SITAGLIPTIN PHOSPHATE
     Route: 048
     Dates: start: 20120106
  18. METGLUCO [Concomitant]
     Active Substance: METFORMIN HYDROCHLORIDE
     Indication: TYPE 2 DIABETES MELLITUS
     Route: 048
     Dates: start: 20131129, end: 20150315
  19. SEIBULE [Concomitant]
     Active Substance: MIGLITOL
     Indication: TYPE 2 DIABETES MELLITUS
     Route: 048
     Dates: start: 20131129
  20. AMARYL [Concomitant]
     Active Substance: GLIMEPIRIDE
     Indication: TYPE 2 DIABETES MELLITUS
     Dosage: MORNING 2 MG, EVENING 1 MG
     Route: 048
     Dates: start: 20130904
  21. PARIET [Concomitant]
     Active Substance: RABEPRAZOLE SODIUM
     Indication: GASTROOESOPHAGEAL REFLUX DISEASE
     Route: 048
  22. CILOSTAZOL. [Concomitant]
     Active Substance: CILOSTAZOL
  23. ACTOS [Concomitant]
     Active Substance: PIOGLITAZONE HYDROCHLORIDE
     Indication: TYPE 2 DIABETES MELLITUS
     Route: 048
     Dates: start: 20131129
  24. PARIET [Concomitant]
     Active Substance: RABEPRAZOLE SODIUM
     Indication: POSTOPERATIVE CARE
     Route: 048
  25. MUCOSTA [Concomitant]
     Active Substance: REBAMIPIDE
     Indication: POSTOPERATIVE CARE
     Route: 048
  26. GASTER [Concomitant]
     Active Substance: FAMOTIDINE
     Route: 048
  27. INOMARL [Concomitant]
     Indication: POSTOPERATIVE CARE
     Route: 048

REACTIONS (7)
  - Lacunar infarction [Recovered/Resolved with Sequelae]
  - Gastrooesophageal reflux disease [Unknown]
  - Fluid intake reduced [Unknown]
  - Chronic gastritis [Unknown]
  - Dehydration [Unknown]
  - Dyslalia [Recovering/Resolving]
  - Carotid arteriosclerosis [Unknown]

NARRATIVE: CASE EVENT DATE: 20150108
